FAERS Safety Report 16895178 (Version 1)
Quarter: 2019Q4

REPORT INFORMATION
  Report Type: Spontaneous
  Country: US (occurrence: US)
  Receive Date: 20191008
  Receipt Date: 20191008
  Transmission Date: 20200122
  Serious: No
  Sender: FDA-Public Use
  Company Number: US-INDIVIOR US-INDV-116285-2018

PATIENT
  Sex: Male

DRUGS (3)
  1. SUBOXONE [Suspect]
     Active Substance: BUPRENORPHINE HYDROCHLORIDE\NALOXONE HYDROCHLORIDE
     Dosage: 12 MG DAILY
     Route: 060
  2. SUBOXONE [Suspect]
     Active Substance: BUPRENORPHINE HYDROCHLORIDE\NALOXONE HYDROCHLORIDE
     Indication: DRUG DEPENDENCE
     Dosage: 8 MG, BID (8 MG IN MORNING AND 8 MG IN EVENING)
     Route: 060
  3. SUBOXONE [Suspect]
     Active Substance: BUPRENORPHINE HYDROCHLORIDE\NALOXONE HYDROCHLORIDE
     Dosage: 8 MG IN MORNING AND 4 MG IN AFTERNOON
     Route: 060

REACTIONS (6)
  - HIV infection [Not Recovered/Not Resolved]
  - Hepatitis B [Recovered/Resolved]
  - Drug screen negative [Recovered/Resolved]
  - Bipolar disorder [Unknown]
  - Inappropriate schedule of product administration [Recovered/Resolved]
  - Constipation [Not Recovered/Not Resolved]
